FAERS Safety Report 5592542-0 (Version None)
Quarter: 2008Q1

REPORT INFORMATION
  Report Type: 
  Country: None (occurrence: None)
  Receive Date: 20080111
  Receipt Date: 20080103
  Transmission Date: 20080703
  Serious: Yes (Congenital Anomaly)
  Sender: FDA-Public Use
  Company Number: B0461185A

PATIENT
  Sex: Female
  Weight: 2.8123 kg

DRUGS (4)
  1. LAMICTAL [Suspect]
     Indication: EPILEPSY
     Dosage: 200 MG / PER DAY / TRANSPLACENTARY
     Route: 064
  2. CLOBAZAM (FORMULATION UNKNOWN) (CLOBAZAM) [Suspect]
     Indication: EPILEPSY
     Dosage: 10 MG / PER DAY / TRANSPLACENTARY
     Route: 064
  3. LEVETIRACETAM [Suspect]
     Indication: EPILEPSY
     Dosage: 1000 MG / PER DAY / TRANSPLACENTARY
     Route: 064
  4. VALPROATE SODIUM [Suspect]
     Indication: EPILEPSY
     Dosage: 1200 MG / PER DAY / TRANSPLACENTARY
     Route: 065

REACTIONS (2)
  - DRUG EXPOSURE DURING PREGNANCY [None]
  - SPINA BIFIDA [None]
